FAERS Safety Report 26044660 (Version 3)
Quarter: 2025Q4

REPORT INFORMATION
  Report Type: Spontaneous
  Country: US (occurrence: US)
  Receive Date: 20251114
  Receipt Date: 20251214
  Transmission Date: 20260118
  Serious: No
  Sender: BIOGEN
  Company Number: US-BIOGEN-2090462

PATIENT
  Age: 45 Year
  Sex: Female

DRUGS (2)
  1. TYSABRI [Suspect]
     Active Substance: NATALIZUMAB
     Indication: Multiple sclerosis
  2. TYSABRI [Suspect]
     Active Substance: NATALIZUMAB

REACTIONS (1)
  - Memory impairment [Unknown]

NARRATIVE: CASE EVENT DATE: 20250101
